FAERS Safety Report 6874654-4 (Version None)
Quarter: 2010Q3

REPORT INFORMATION
  Report Type: 
  Country: None (occurrence: None)
  Receive Date: 20100722
  Receipt Date: 20100713
  Transmission Date: 20110219
  Serious: Yes (Other)
  Sender: FDA-Public Use
  Company Number: 661719

PATIENT
  Age: 30 Year
  Sex: Female
  Weight: 95.709 kg

DRUGS (5)
  1. DERMAREST ECZEMA MED MOIST SEN SK 2OZ [Suspect]
     Indication: ECZEMA
     Dosage: APPLIED TO AFFECTED AREAS
     Dates: start: 20100712, end: 20100712
  2. ULTRAM [Concomitant]
  3. ZANAFLEX [Concomitant]
  4. PROZAC [Concomitant]
  5. AMBIEN [Concomitant]

REACTIONS (4)
  - DYSPHAGIA [None]
  - DYSPNOEA [None]
  - RASH PRURITIC [None]
  - URTICARIA [None]
